FAERS Safety Report 14484521 (Version 1)
Quarter: 2018Q1

REPORT INFORMATION
  Report Type: Spontaneous
  Country: RU (occurrence: RU)
  Receive Date: 20180205
  Receipt Date: 20180205
  Transmission Date: 20180509
  Serious: Yes (Hospitalization, Other)
  Sender: FDA-Public Use
  Company Number: RU-SUN PHARMACEUTICAL INDUSTRIES LTD-2016RR-130911

PATIENT
  Sex: Female

DRUGS (11)
  1. PREDNISOLONE. [Suspect]
     Active Substance: PREDNISOLONE
     Dosage: DECREASE TO 1 TABLET PER MONTH UP TO 15 MG DAILY
     Route: 048
     Dates: start: 2005
  2. PREDNISOLONE. [Suspect]
     Active Substance: PREDNISOLONE
     Dosage: 40 MG, QD
     Route: 065
     Dates: start: 2008
  3. ALPHA-TOCOPHEROL [Concomitant]
     Active Substance: .ALPHA.-TOCOPHEROL
     Indication: SARCOIDOSIS
     Dosage: 200 MG, BID (MORNING AND EVENING)
     Route: 065
  4. METHOTREXATE. [Suspect]
     Active Substance: METHOTREXATE
     Dosage: 15 MG, 1/WEEK
     Route: 065
     Dates: start: 2011
  5. METHOTREXATE. [Suspect]
     Active Substance: METHOTREXATE
     Dosage: 10 MG, 1/WEEK
     Route: 065
     Dates: start: 2011
  6. PENTOXIFYLLINE. [Suspect]
     Active Substance: PENTOXIFYLLINE
     Indication: SARCOIDOSIS
     Dosage: 200 MG, TID
     Route: 048
  7. N-ACETYLCYSTEINE [Concomitant]
     Active Substance: ACETYLCYSTEINE
     Indication: SARCOIDOSIS
     Dosage: 600 MG, DAILY
     Route: 065
  8. METHOTREXATE. [Suspect]
     Active Substance: METHOTREXATE
     Indication: SARCOIDOSIS
     Dosage: 5 MG, 1/WEEK
     Route: 065
     Dates: start: 201102
  9. PENTOXIFYLLINE. [Suspect]
     Active Substance: PENTOXIFYLLINE
     Dosage: 200 MG, QD
     Route: 065
     Dates: start: 2006, end: 2006
  10. PREDNISOLONE. [Suspect]
     Active Substance: PREDNISOLONE
     Dosage: 20 MG, QD
     Route: 065
  11. PREDNISOLONE. [Suspect]
     Active Substance: PREDNISOLONE
     Indication: SARCOIDOSIS
     Dosage: WITH DECREASE TO 1 TABLET PER MONTH UP TO 15 MG DAILY
     Route: 048

REACTIONS (19)
  - Intestinal haemorrhage [Unknown]
  - Asthenia [Recovering/Resolving]
  - Hypotension [Recovered/Resolved]
  - Rectal haemorrhage [Recovering/Resolving]
  - Condition aggravated [Unknown]
  - Headache [Recovered/Resolved]
  - Duodenal ulcer [Recovering/Resolving]
  - Hypertension [Unknown]
  - Herpes zoster [Unknown]
  - Hepatic enzyme increased [Recovering/Resolving]
  - Weight increased [Recovering/Resolving]
  - Leukopenia [Unknown]
  - Duodenal ulcer [Unknown]
  - Nausea [Recovering/Resolving]
  - Thrombophlebitis [Recovering/Resolving]
  - Cushing^s syndrome [Recovering/Resolving]
  - Leukocytosis [Recovering/Resolving]
  - Cushing^s syndrome [Unknown]
  - Leukopenia [Unknown]

NARRATIVE: CASE EVENT DATE: 2005
